FAERS Safety Report 10393108 (Version 1)
Quarter: 2014Q3

REPORT INFORMATION
  Report Type: Report from Study
  Country: EG (occurrence: EG)
  Receive Date: 20140819
  Receipt Date: 20140819
  Transmission Date: 20150326
  Serious: Yes (Hospitalization, Other)
  Sender: FDA-Public Use
  Company Number: EG-SA-2014SA109050

PATIENT
  Age: 56 Year
  Sex: Female

DRUGS (2)
  1. MIXTARD HUMAN 70/30 [Concomitant]
     Active Substance: INSULIN HUMAN
  2. LANTUS [Suspect]
     Active Substance: INSULIN GLARGINE
     Indication: TYPE 2 DIABETES MELLITUS
     Route: 058
     Dates: start: 20130717

REACTIONS (3)
  - Diabetic foot [Recovered/Resolved]
  - Wound infection [Unknown]
  - Blood glucose abnormal [Unknown]

NARRATIVE: CASE EVENT DATE: 201312
